FAERS Safety Report 16981685 (Version 6)
Quarter: 2020Q1

REPORT INFORMATION
  Report Type: Spontaneous
  Country: US (occurrence: US)
  Receive Date: 20191101
  Receipt Date: 20200109
  Transmission Date: 20200409
  Serious: Yes (Other)
  Sender: FDA-Public Use
  Company Number: US-UNITED THERAPEUTICS-UNT-2019-018051

PATIENT
  Sex: Female
  Weight: 98.87 kg

DRUGS (10)
  1. ORENITRAM [Suspect]
     Active Substance: TREPROSTINIL
     Indication: PULMONARY ARTERIAL HYPERTENSION
     Dosage: UNK
     Route: 048
  2. GABAPENTIN. [Suspect]
     Active Substance: GABAPENTIN
     Indication: PRODUCT USED FOR UNKNOWN INDICATION
     Dosage: UNK
     Route: 065
  3. ORENITRAM [Suspect]
     Active Substance: TREPROSTINIL
     Dosage: 0.375 MG, Q8H
     Route: 048
  4. ORENITRAM [Suspect]
     Active Substance: TREPROSTINIL
     Indication: PULMONARY ARTERIAL HYPERTENSION
     Dosage: UNK
     Route: 048
  5. ORENITRAM [Suspect]
     Active Substance: TREPROSTINIL
     Indication: PULMONARY ARTERIAL HYPERTENSION
     Dosage: 0.125 MG, Q8H
     Route: 048
     Dates: start: 20191010
  6. ZOFRAN [Suspect]
     Active Substance: ONDANSETRON HYDROCHLORIDE
     Indication: PRODUCT USED FOR UNKNOWN INDICATION
     Dosage: UNK
     Route: 065
  7. ORENITRAM [Suspect]
     Active Substance: TREPROSTINIL
     Dosage: 0.5 MG, Q8H
     Route: 048
  8. TUMS [Suspect]
     Active Substance: CALCIUM CARBONATE
     Indication: OESOPHAGEAL SPASM
     Dosage: UNK
     Route: 065
  9. ELIQUIS [Concomitant]
     Active Substance: APIXABAN
     Indication: PRODUCT USED FOR UNKNOWN INDICATION
     Dosage: UNK
     Route: 065
  10. ORENITRAM [Suspect]
     Active Substance: TREPROSTINIL
     Dosage: 0.625 MG, Q8H
     Route: 048

REACTIONS (22)
  - Musculoskeletal chest pain [Unknown]
  - Nausea [Unknown]
  - Oedema peripheral [Unknown]
  - Weight fluctuation [Unknown]
  - Motion sickness [Unknown]
  - Vomiting [Unknown]
  - Gastrointestinal motility disorder [Unknown]
  - Thrombosis [Unknown]
  - Feeling abnormal [Unknown]
  - Epilepsy [Unknown]
  - Abdominal distension [Unknown]
  - Pain [Unknown]
  - Chest pain [Unknown]
  - Product use issue [Unknown]
  - Headache [Unknown]
  - Neuropathy peripheral [Unknown]
  - Bone pain [Unknown]
  - Gastrooesophageal reflux disease [Unknown]
  - Dry mouth [Unknown]
  - Pulmonary pain [Unknown]
  - Fibromyalgia [Unknown]
  - Oesophageal spasm [Recovering/Resolving]

NARRATIVE: CASE EVENT DATE: 2019
